FAERS Safety Report 18061023 (Version 1)
Quarter: 2020Q3

REPORT INFORMATION
  Report Type: Spontaneous
  Country: US (occurrence: US)
  Receive Date: 20200723
  Receipt Date: 20200723
  Transmission Date: 20201103
  Serious: No
  Sender: FDA-Public Use
  Company Number: US-ENDO PHARMACEUTICALS INC-2019-110778

PATIENT
  Age: 51 Year
  Sex: Male
  Weight: 103.4 kg

DRUGS (9)
  1. CARVEDILOL. [Concomitant]
     Active Substance: CARVEDILOL
     Indication: CARDIOMYOPATHY
  2. LISINOPRIL. [Concomitant]
     Active Substance: LISINOPRIL
     Indication: CARDIOMYOPATHY
  3. ATORVASTATIN                       /01326102/ [Concomitant]
     Active Substance: ATORVASTATIN
     Indication: BLOOD CHOLESTEROL
  4. LORATADINE. [Concomitant]
     Active Substance: LORATADINE
     Indication: SEASONAL ALLERGY
  5. EDEX [Suspect]
     Active Substance: ALPROSTADIL
     Dosage: 25 UNK, UNK; 75 MCG, ONE INJECTION
     Route: 065
     Dates: start: 20191206
  6. LISINOPRIL. [Concomitant]
     Active Substance: LISINOPRIL
     Indication: HYPERTENSION
  7. EDEX [Suspect]
     Active Substance: ALPROSTADIL
     Indication: ERECTILE DYSFUNCTION
     Dosage: 25 UNK, UNK; 25 MCG, ONE INJECTION
     Route: 065
     Dates: start: 20191130
  8. EDEX [Suspect]
     Active Substance: ALPROSTADIL
     Dosage: 25 UNK, UNK; 50 MCG, ONE INJECTION
     Route: 065
     Dates: start: 20191203
  9. VITAMIN D3 [Concomitant]
     Active Substance: CHOLECALCIFEROL
     Indication: VITAMIN D DEFICIENCY

REACTIONS (5)
  - Erythema [Not Recovered/Not Resolved]
  - Erectile dysfunction [Unknown]
  - Burning sensation [Not Recovered/Not Resolved]
  - Limb discomfort [Not Recovered/Not Resolved]
  - Muscle spasms [Not Recovered/Not Resolved]

NARRATIVE: CASE EVENT DATE: 20191130
